FAERS Safety Report 5953672-4 (Version None)
Quarter: 2008Q4

REPORT INFORMATION
  Report Type: 
  Country: None (occurrence: None)
  Receive Date: 20081114
  Receipt Date: 20081105
  Transmission Date: 20090506
  Serious: Yes (Hospitalization, Other)
  Sender: FDA-Public Use
  Company Number: DE-SANOFI-SYNTHELABO-F04200800103

PATIENT
  Sex: Male

DRUGS (5)
  1. IRINOTECAN HYDROCHLORIDE [Suspect]
     Indication: COLORECTAL CANCER STAGE IV
     Route: 041
  2. IMATINIB MESYLATE [Suspect]
     Indication: COLORECTAL CANCER STAGE IV
     Dosage: 300 MG
     Route: 048
     Dates: start: 20080101, end: 20080923
  3. CAPECITABINE [Suspect]
     Indication: COLORECTAL CANCER STAGE IV
     Dosage: 1700 MG/M2
     Route: 048
     Dates: start: 20080101, end: 20080918
  4. BEVACIZUMAB [Suspect]
     Indication: COLORECTAL CANCER STAGE IV
     Route: 041
     Dates: start: 20080101, end: 20080101
  5. OXALIPLATIN [Suspect]
     Indication: COLORECTAL CANCER STAGE IV
     Route: 041
     Dates: start: 20080101, end: 20080101

REACTIONS (3)
  - AORTIC VALVE INCOMPETENCE [None]
  - DIARRHOEA [None]
  - ILEUS [None]
